FAERS Safety Report 11750438 (Version 2)
Quarter: 2015Q4

REPORT INFORMATION
  Report Type: Spontaneous
  Country: US (occurrence: US)
  Receive Date: 20151118
  Receipt Date: 20151221
  Transmission Date: 20160304
  Serious: Yes (Hospitalization, Other)
  Sender: FDA-Public Use
  Company Number: US-SMITH AND NEPHEW, INC-2015SMT00519

PATIENT
  Age: 71 Year
  Sex: Male

DRUGS (1)
  1. REGRANEX [Suspect]
     Active Substance: BECAPLERMIN
     Indication: WOUND
     Dosage: UNK
     Dates: start: 20150825

REACTIONS (12)
  - Polycythaemia vera [Unknown]
  - Anaemia [Unknown]
  - Application site infection [Recovered/Resolved with Sequelae]
  - Chest pain [Unknown]
  - Asthenia [Unknown]
  - Wound complication [Recovered/Resolved with Sequelae]
  - Foot amputation [Recovered/Resolved with Sequelae]
  - Osteomyelitis [Unknown]
  - Dyspnoea exertional [Unknown]
  - Red blood cell sedimentation rate increased [Unknown]
  - Gait disturbance [Unknown]
  - C-reactive protein increased [Unknown]

NARRATIVE: CASE EVENT DATE: 20150915
